FAERS Safety Report 7318365-X (Version None)
Quarter: 2011Q1

REPORT INFORMATION
  Report Type: 
  Country: None (occurrence: None)
  Receive Date: 20110217
  Receipt Date: 20110217
  Transmission Date: 20110831
  Serious: Yes (Other)
  Sender: FDA-Public Use
  Company Number: None

PATIENT
  Age: 46 Year
  Sex: Male
  Weight: 72.5755 kg

DRUGS (2)
  1. OXYCONTIN [Suspect]
     Indication: INTERVERTEBRAL DISC DISORDER
     Dosage: Q 12 HR PO
     Route: 048
     Dates: start: 20110124, end: 20110205
  2. OXYCONTIN [Suspect]
     Indication: PAIN
     Dosage: Q 12 HR PO
     Route: 048
     Dates: start: 20110124, end: 20110205

REACTIONS (3)
  - PRODUCT FORMULATION ISSUE [None]
  - PRODUCT MEASURED POTENCY ISSUE [None]
  - DRUG INEFFECTIVE [None]
